FAERS Safety Report 7795060 (Version 3)
Quarter: 2014Q1

REPORT INFORMATION
  Report Type: Spontaneous
  Country: US (occurrence: US)
  Receive Date: 20110201
  Receipt Date: 20140114
  Transmission Date: 20141002
  Serious: Yes (Hospitalization, Other)
  Sender: FDA-Public Use
  Company Number: US-BAYER-2011-009934

PATIENT
  Age: 27 Year
  Sex: Female
  Weight: 58.96 kg

DRUGS (2)
  1. YAZ [Suspect]
     Indication: ORAL CONTRACEPTION
     Dosage: UNK
     Dates: start: 2006, end: 2010
  2. PREVACID [Concomitant]
     Dosage: 30 MG, UNK

REACTIONS (5)
  - Biliary colic [None]
  - Cholecystitis chronic [None]
  - Pain [None]
  - Scar [None]
  - Emotional distress [None]
